FAERS Safety Report 17874133 (Version 1)
Quarter: 2020Q2

REPORT INFORMATION
  Report Type: Spontaneous
  Country: SE (occurrence: SE)
  Receive Date: 20200609
  Receipt Date: 20200609
  Transmission Date: 20200714
  Serious: Yes (Other)
  Sender: FDA-Public Use
  Company Number: SE-TEVA-2020-SE-1245691

PATIENT
  Age: 66 Year
  Sex: Female

DRUGS (2)
  1. THERALEN [Concomitant]
     Active Substance: TRIMEPRAZINE
     Dosage: UP TO 6 ML PER DAY
  2. ATORVASTATIN [Suspect]
     Active Substance: ATORVASTATIN
     Route: 065

REACTIONS (2)
  - Cholestasis [Recovered/Resolved]
  - Hepatotoxicity [Recovered/Resolved]

NARRATIVE: CASE EVENT DATE: 20200405
